FAERS Safety Report 6539295-7 (Version None)
Quarter: 2010Q1

REPORT INFORMATION
  Report Type: 
  Country: None (occurrence: None)
  Receive Date: 20100115
  Receipt Date: 20100111
  Transmission Date: 20100710
  Serious: Yes (Other)
  Sender: FDA-Public Use
  Company Number: SE-JNJFOC-20100102876

PATIENT
  Age: 42 Year
  Sex: Female
  Weight: 110 kg

DRUGS (4)
  1. HALDOL [Suspect]
     Indication: DRUG USE FOR UNKNOWN INDICATION
     Route: 065
  2. ABILIFY [Suspect]
     Indication: DRUG USE FOR UNKNOWN INDICATION
     Route: 065
  3. XANOR [Suspect]
     Indication: DRUG USE FOR UNKNOWN INDICATION
     Route: 065
  4. BUSPIRONE [Suspect]
     Indication: DRUG USE FOR UNKNOWN INDICATION
     Route: 065

REACTIONS (5)
  - AGGRESSION [None]
  - BREAST ENLARGEMENT [None]
  - DRY SKIN [None]
  - IRRITABILITY [None]
  - WEIGHT INCREASED [None]
